FAERS Safety Report 10951304 (Version 1)
Quarter: 2015Q1

REPORT INFORMATION
  Report Type: Report from Study
  Country: TR (occurrence: TR)
  Receive Date: 20150324
  Receipt Date: 20150324
  Transmission Date: 20150721
  Serious: Yes (Other)
  Sender: FDA-Public Use
  Company Number: PHHY2015TR031521

PATIENT
  Age: 15 Year
  Sex: Female
  Weight: 46 kg

DRUGS (6)
  1. YASMIN [Suspect]
     Active Substance: DROSPIRENONE\ETHINYL ESTRADIOL
     Indication: MENSTRUAL DISORDER
  2. SOMATROPIN [Suspect]
     Active Substance: SOMATROPIN
     Dosage: 2.6 MG, UNK
     Route: 058
  3. SODIUM FLUORIDE. [Concomitant]
     Active Substance: SODIUM FLUORIDE
     Indication: OSTEOLYSIS
     Dosage: UNK UNK, BID
     Route: 048
  4. SOMATROPIN [Suspect]
     Active Substance: SOMATROPIN
     Indication: GROWTH HORMONE DEFICIENCY
     Dosage: 30 IU, ONCE/SINGLE
     Route: 058
     Dates: end: 20150204
  5. SOMATROPIN [Suspect]
     Active Substance: SOMATROPIN
     Dosage: 2.5 MG, UNK
     Route: 058
  6. YASMIN [Suspect]
     Active Substance: DROSPIRENONE\ETHINYL ESTRADIOL
     Indication: OVARIAN DISORDER
     Dosage: UNK, ONCE/SINGLE
     Route: 048

REACTIONS (1)
  - Chondropathy [Not Recovered/Not Resolved]

NARRATIVE: CASE EVENT DATE: 20150204
